FAERS Safety Report 7131756-5 (Version None)
Quarter: 2010Q4

REPORT INFORMATION
  Report Type: 
  Country: None (occurrence: None)
  Receive Date: 20101202
  Receipt Date: 20101122
  Transmission Date: 20110411
  Serious: Yes (Hospitalization)
  Sender: FDA-Public Use
  Company Number: 2010BI004390

PATIENT
  Age: 48 Year
  Sex: Female

DRUGS (2)
  1. TYSABRI [Suspect]
     Indication: MULTIPLE SCLEROSIS
     Route: 042
     Dates: start: 20070502, end: 20100401
  2. TYSABRI [Suspect]
     Route: 042

REACTIONS (3)
  - BUNION [None]
  - EXOSTOSIS [None]
  - POSTOPERATIVE WOUND INFECTION [None]
